FAERS Safety Report 7972085-7 (Version None)
Quarter: 2011Q4

REPORT INFORMATION
  Report Type: 
  Country: None (occurrence: None)
  Receive Date: 20111212
  Receipt Date: 20111201
  Transmission Date: 20120403
  Serious: Yes (Hospitalization)
  Sender: FDA-Public Use
  Company Number: BR-ASTRAZENECA-2011SE36277

PATIENT
  Age: 70 Year
  Sex: Female

DRUGS (8)
  1. MODURETIC 5-50 [Concomitant]
     Indication: HYPERTENSION
     Route: 048
  2. FEMARA [Concomitant]
  3. DIGESAN [Concomitant]
  4. COUMADIN [Concomitant]
     Indication: HYPERTENSION
     Route: 048
  5. CONDROFLEX [Concomitant]
     Indication: HYPERTENSION
     Route: 048
  6. OMEPRAZOLE [Suspect]
     Indication: ABDOMINAL PAIN UPPER
     Dosage: ONCE A DAY
     Route: 048
     Dates: start: 20100101
  7. NEXIUM [Suspect]
     Route: 048
  8. ATENOLOL [Suspect]
     Indication: HYPERTENSION
     Dosage: ONCE A DAY
     Route: 048
     Dates: start: 19900101, end: 20110401

REACTIONS (4)
  - HYPERTENSION [None]
  - BLOOD PRESSURE INCREASED [None]
  - ABDOMINAL PAIN UPPER [None]
  - BREAST CANCER [None]
